FAERS Safety Report 9917488 (Version 1)
Quarter: 2014Q1

REPORT INFORMATION
  Report Type: Spontaneous
  Country: US (occurrence: US)
  Receive Date: 20140221
  Receipt Date: 20140221
  Transmission Date: 20141002
  Serious: No
  Sender: FDA-Public Use
  Company Number: US-PFIZER INC-2014049799

PATIENT
  Sex: Male

DRUGS (2)
  1. EFFEXOR XR [Suspect]
     Indication: DEPRESSION
     Dosage: 187.5 MG, 1X/DAY
  2. EFFEXOR XR [Suspect]
     Dosage: 225 MG, 1X/DAY

REACTIONS (1)
  - Depression [Unknown]
